FAERS Safety Report 4949117-3 (Version None)
Quarter: 2006Q1

REPORT INFORMATION
  Report Type: 
  Country: None (occurrence: None)
  Receive Date: 20060315
  Receipt Date: 20060308
  Transmission Date: 20060701
  Serious: Yes (Hospitalization)
  Sender: FDA-Public Use
  Company Number: TPA2006A00345

PATIENT
  Age: 74 Year
  Sex: Female

DRUGS (1)
  1. ACTOS [Suspect]
     Dosage: 30 MG, PER ORAL
     Route: 048

REACTIONS (6)
  - CHEST PAIN [None]
  - DIARRHOEA [None]
  - DRUG DISPENSING ERROR [None]
  - GASTROINTESTINAL DISORDER [None]
  - NAUSEA [None]
  - WRONG DRUG ADMINISTERED [None]
